FAERS Safety Report 7780786-9 (Version None)
Quarter: 2011Q3

REPORT INFORMATION
  Report Type: 
  Country: None (occurrence: None)
  Receive Date: 20110927
  Receipt Date: 20110923
  Transmission Date: 20111222
  Serious: No
  Sender: FDA-Public Use
  Company Number: US-PFIZER INC-2011227516

PATIENT
  Sex: Female

DRUGS (3)
  1. IBUPROFEN (ADVIL) [Suspect]
     Indication: NASOPHARYNGITIS
     Dosage: UNKNOWN DOSE AS NEEDED
     Route: 048
     Dates: start: 20110901, end: 20110901
  2. IBUPROFEN (ADVIL) [Suspect]
     Indication: PAIN
  3. ATENOLOL [Concomitant]
     Indication: HYPERTENSION
     Dosage: UNK

REACTIONS (3)
  - HYPERHIDROSIS [None]
  - RASH [None]
  - DRUG INEFFECTIVE [None]
